FAERS Safety Report 15473140 (Version 1)
Quarter: 2018Q4

REPORT INFORMATION
  Report Type: Spontaneous
  Country: DE (occurrence: DE)
  Receive Date: 20181008
  Receipt Date: 20181008
  Transmission Date: 20190205
  Serious: Yes (Other)
  Sender: FDA-Public Use
  Company Number: DE-BAYER-DE-2006-034037

PATIENT
  Age: 29 Year
  Sex: Female
  Weight: 50 kg

DRUGS (1)
  1. MIRENA [Suspect]
     Active Substance: LEVONORGESTREL
     Indication: CONTRACEPTION
     Dosage: 20 ?G/DAY, CONT
     Route: 015
     Dates: start: 20061012

REACTIONS (4)
  - Retinal haemorrhage [Recovered/Resolved]
  - Retinal ischaemia [Recovered/Resolved]
  - Vascular occlusion [Recovered/Resolved]
  - Retinal infarction [Recovering/Resolving]

NARRATIVE: CASE EVENT DATE: 20061021
